FAERS Safety Report 6825961-2 (Version None)
Quarter: 2010Q3

REPORT INFORMATION
  Report Type: 
  Country: None (occurrence: None)
  Receive Date: 20100707
  Receipt Date: 20100707
  Transmission Date: 20110219
  Serious: Yes (Disabling)
  Sender: FDA-Public Use
  Company Number: None

PATIENT
  Sex: Female
  Weight: 70.3075 kg

DRUGS (1)
  1. FOSAMAX [Suspect]
     Indication: BONE DENSITY ABNORMAL
     Dosage: 70MG 1 A WEEK
     Dates: start: 20040101, end: 20090101

REACTIONS (2)
  - BONE DISORDER [None]
  - MUSCLE INJURY [None]
